FAERS Safety Report 6536332-0 (Version None)
Quarter: 2010Q1

REPORT INFORMATION
  Report Type: 
  Country: None (occurrence: None)
  Receive Date: 20100113
  Receipt Date: 20091222
  Transmission Date: 20100710
  Serious: No
  Sender: FDA-Public Use
  Company Number: US-ALLERGAN-0916634US

PATIENT
  Age: 70 Year
  Sex: Female
  Weight: 95.238 kg

DRUGS (1)
  1. LATISSE [Suspect]
     Indication: GROWTH OF EYELASHES
     Dosage: 1 GTT, QHS
     Route: 061
     Dates: start: 20090710, end: 20090905

REACTIONS (2)
  - SKIN HYPERPIGMENTATION [None]
  - VISION BLURRED [None]
